APPROVED DRUG PRODUCT: CEFEPIME IN PLASTIC CONTAINER
Active Ingredient: CEFEPIME HYDROCHLORIDE
Strength: EQ 1GM BASE/50ML (EQ 20MG BASE/ML)
Dosage Form/Route: INJECTABLE;INJECTION
Application: N050817 | Product #001
Applicant: BAXTER HEALTHCARE CORP
Approved: Aug 5, 2008 | RLD: Yes | RS: Yes | Type: RX